FAERS Safety Report 6580178-4 (Version None)
Quarter: 2010Q1

REPORT INFORMATION
  Report Type: 
  Country: None (occurrence: None)
  Receive Date: 20100212
  Receipt Date: 20100205
  Transmission Date: 20100710
  Serious: Yes (Hospitalization)
  Sender: FDA-Public Use
  Company Number: DE-WATSON-2010-01546

PATIENT

DRUGS (15)
  1. SIMVASTATIN [Suspect]
     Indication: DYSLIPIDAEMIA
     Dosage: 10 MG, UNK
     Route: 048
     Dates: start: 20050101
  2. FENTANYL HEXAL [Suspect]
     Indication: PAIN
     Dosage: 50 MCG, UNK
     Route: 062
     Dates: start: 20090601, end: 20090727
  3. RESTEX [Suspect]
     Indication: RESTLESS LEGS SYNDROME
     Dosage: 1 DF (100MG/25MG), UNK
     Route: 048
     Dates: start: 20060101
  4. CARVEDILOL [Suspect]
     Indication: HYPERTENSION
     Dosage: 12 1/2 MG, UNK
     Route: 048
     Dates: start: 20060101
  5. BLOPRESS [Suspect]
     Indication: HYPERTENSION
     Dosage: 8 MG, UNK
     Route: 048
     Dates: start: 20070101
  6. OMEPRAZOL                          /00661201/ [Suspect]
     Indication: PROPHYLAXIS AGAINST GASTROINTESTINAL ULCER
     Dosage: 40 MG, UNK
     Route: 048
     Dates: start: 20050101
  7. MIMPARA                            /01735301/ [Suspect]
     Indication: HYPERPARATHYROIDISM SECONDARY
     Dosage: 270 MG, UNK
     Route: 048
     Dates: start: 20060101
  8. NOVONORM [Suspect]
     Indication: TYPE 2 DIABETES MELLITUS
     Dosage: 2 MG, UNK
     Route: 048
     Dates: start: 20070101
  9. ACTONEL [Suspect]
     Indication: OSTEOPOROSIS
     Dosage: 35 MG, UNK
     Route: 048
     Dates: start: 20080101
  10. DREISAVIT                          /00844801/ [Concomitant]
     Indication: VITAMIN SUPPLEMENTATION
     Dosage: 1 DF, UNK
     Route: 048
     Dates: start: 20050101, end: 20090726
  11. FOSRENOL [Concomitant]
     Indication: RENAL FAILURE
     Dosage: 1000 MG, UNK
     Route: 048
     Dates: start: 20070601
  12. DIGIMED [Concomitant]
     Indication: CORONARY ARTERY DISEASE
     Dosage: 0.07 MG, UNK
     Route: 048
     Dates: start: 20070601
  13. MCP                                /00041901/ [Concomitant]
     Indication: NAUSEA
     Dosage: 10 MG, UNK
     Route: 048
     Dates: start: 20050101, end: 20090731
  14. ASS AL [Concomitant]
     Indication: CORONARY ARTERY DISEASE
     Dosage: 100 MG, UNK
     Route: 048
     Dates: start: 20050101
  15. METAMIZOLE [Suspect]
     Indication: PAIN
     Dosage: 1000 MG, UNK
     Route: 048
     Dates: start: 20090601

REACTIONS (3)
  - DRUG INTERACTION [None]
  - SOMNOLENCE [None]
  - TRANSAMINASES INCREASED [None]
